FAERS Safety Report 18112637 (Version 1)
Quarter: 2020Q3

REPORT INFORMATION
  Report Type: Spontaneous
  Country: US (occurrence: US)
  Receive Date: 20200804
  Receipt Date: 20200804
  Transmission Date: 20201103
  Serious: Yes (Hospitalization)
  Sender: FDA-Public Use
  Company Number: None

PATIENT
  Sex: Female

DRUGS (1)
  1. BENLYSTA [Suspect]
     Active Substance: BELIMUMAB

REACTIONS (8)
  - Hallucination [None]
  - Pyrexia [None]
  - Pain [None]
  - Headache [None]
  - Vomiting [None]
  - Condition aggravated [None]
  - Systemic lupus erythematosus [None]
  - Oropharyngeal pain [None]
